FAERS Safety Report 20168119 (Version 1)
Quarter: 2021Q4

REPORT INFORMATION
  Report Type: Spontaneous
  Country: CN (occurrence: CN)
  Receive Date: 20211210
  Receipt Date: 20211210
  Transmission Date: 20220303
  Serious: Yes (Other)
  Sender: FDA-Public Use
  Company Number: None

PATIENT
  Age: 68 Year
  Sex: Male
  Weight: 50 kg

DRUGS (4)
  1. TRESIBA [Suspect]
     Active Substance: INSULIN DEGLUDEC
     Indication: Type 2 diabetes mellitus
     Dosage: 8 IU, QD
     Route: 058
     Dates: start: 20211104, end: 20211105
  2. INSULIN PORK\INSULIN PURIFIED PORK [Suspect]
     Active Substance: INSULIN PORK\INSULIN PURIFIED PORK
     Indication: Type 2 diabetes mellitus
     Dosage: 8 IU, QD
     Route: 042
     Dates: start: 20211105
  3. CARVEDILOL [Suspect]
     Active Substance: CARVEDILOL
     Indication: Supplementation therapy
     Dosage: 200 ML
     Route: 042
  4. AMINO ACIDS\DEXTROSE\EGG PHOSPHOLIPIDS\ELECTROLYTES NOS\SAFFLOWER OIL\ [Suspect]
     Active Substance: AMINO ACIDS\DEXTROSE\EGG PHOSPHOLIPIDS\ELECTROLYTES NOS\SAFFLOWER OIL\SOYBEAN OIL
     Indication: Supplementation therapy
     Dosage: 900 ML
     Route: 042
     Dates: start: 20211105

REACTIONS (5)
  - Nutritional condition abnormal [Recovered/Resolved]
  - Decreased appetite [Recovered/Resolved]
  - Rash [Recovered/Resolved]
  - Pruritus [Recovered/Resolved]
  - Hypoglycaemia [Recovered/Resolved]

NARRATIVE: CASE EVENT DATE: 20211105
